FAERS Safety Report 23568855 (Version 2)
Quarter: 2024Q3

REPORT INFORMATION
  Report Type: Report from Study
  Country: CO (occurrence: CO)
  Receive Date: 20240227
  Receipt Date: 20240708
  Transmission Date: 20241017
  Serious: Yes (Death, Hospitalization)
  Sender: NOVARTIS
  Company Number: CO-002147023-NVSC2024CO033767

PATIENT
  Sex: Male
  Weight: 72 kg

DRUGS (2)
  1. TASIGNA [Suspect]
     Active Substance: NILOTINIB
     Indication: Chronic myeloid leukaemia
     Dosage: 800 MG, QD
     Route: 048
     Dates: start: 20200106
  2. TASIGNA [Suspect]
     Active Substance: NILOTINIB
     Dosage: 400 MG, BID (EVERY 12 HOURS)
     Route: 048
     Dates: start: 20200106

REACTIONS (5)
  - Hepatic cirrhosis [Fatal]
  - Hepatic encephalopathy [Unknown]
  - Memory impairment [Unknown]
  - Incorrect dose administered [Unknown]
  - Weight decreased [Unknown]
